FAERS Safety Report 10285895 (Version 2)
Quarter: 2025Q3

REPORT INFORMATION
  Report Type: Spontaneous
  Country: TR (occurrence: TR)
  Receive Date: 20140709
  Receipt Date: 20250814
  Transmission Date: 20251021
  Serious: Yes (Other)
  Sender: MERCK SHARP & DOHME LLC
  Company Number: TR-009507513-1407TUR003369

PATIENT
  Age: 8 Year
  Sex: Male

DRUGS (8)
  1. CASPOFUNGIN ACETATE [Suspect]
     Active Substance: CASPOFUNGIN ACETATE
     Indication: Mucosal inflammation
     Route: 042
  2. METHYLPREDNISOLONE SODIUM SUCCINATE [Suspect]
     Active Substance: METHYLPREDNISOLONE SODIUM SUCCINATE
  3. METHOTREXATE [Suspect]
     Active Substance: METHOTREXATE
  4. FLUCONAZOLE [Suspect]
     Active Substance: FLUCONAZOLE
     Indication: Mucosal inflammation
     Route: 042
  5. VINCRISTINE SULFATE [Concomitant]
     Active Substance: VINCRISTINE SULFATE
  6. ASPARAGINASE [Concomitant]
     Active Substance: ASPARAGINASE
  7. CYCLOPHOSPHAMIDE [Concomitant]
     Active Substance: CYCLOPHOSPHAMIDE
  8. DAUNORUBICIN [Concomitant]
     Active Substance: DAUNORUBICIN

REACTIONS (2)
  - Oesophageal stenosis [Recovering/Resolving]
  - Drug ineffective [Unknown]
